FAERS Safety Report 21039004 (Version 5)
Quarter: 2022Q3

REPORT INFORMATION
  Report Type: Spontaneous
  Country: US (occurrence: US)
  Receive Date: 20220704
  Receipt Date: 20220927
  Transmission Date: 20221026
  Serious: Yes (Other)
  Sender: FDA-Public Use
  Company Number: US-BRISTOL-MYERS SQUIBB COMPANY-2022-063861

PATIENT
  Age: 80 Year
  Sex: Male

DRUGS (2)
  1. REVLIMID [Suspect]
     Active Substance: LENALIDOMIDE
     Indication: Plasma cell myeloma
     Route: 048
     Dates: start: 20220604
  2. REVLIMID [Suspect]
     Active Substance: LENALIDOMIDE
     Dosage: TAKE 1 CAPSULE BY MOUTH DAILY ON DAYS 1-21 OF EACH 35 DAY CYCLE. TAKE WHOLE WITH WATER AT THE SAME T
     Route: 048
     Dates: end: 202208

REACTIONS (8)
  - Dizziness [Unknown]
  - Fall [Unknown]
  - Memory impairment [Unknown]
  - Thrombosis [Unknown]
  - Platelet count decreased [Unknown]
  - Off label use [Unknown]
  - Diarrhoea [Unknown]
  - Muscle spasms [Unknown]
